FAERS Safety Report 8576769-1 (Version None)
Quarter: 2012Q3

REPORT INFORMATION
  Report Type: 
  Country: None (occurrence: None)
  Receive Date: 20120807
  Receipt Date: 20120723
  Transmission Date: 20120928
  Serious: Yes (Other)
  Sender: FDA-Public Use
  Company Number: AU-ARROW-2012-13325

PATIENT
  Age: 51 Year
  Sex: Female

DRUGS (2)
  1. PAMIDRONATE DISODIUM [Suspect]
     Indication: PRODUCT USED FOR UNKNOWN INDICATION
     Dosage: 30-60 MG, SIX WEEKLY
  2. ALENDRONATE SODIUM [Suspect]
     Indication: PRODUCT USED FOR UNKNOWN INDICATION
     Dosage: 70 MG, 1/WEEK

REACTIONS (3)
  - LOW TURNOVER OSTEOPATHY [None]
  - ATYPICAL FEMUR FRACTURE [None]
  - IMPAIRED HEALING [None]
